FAERS Safety Report 20008283 (Version 1)
Quarter: 2021Q4

REPORT INFORMATION
  Report Type: Spontaneous
  Country: DE (occurrence: DE)
  Receive Date: 20211028
  Receipt Date: 20211028
  Transmission Date: 20220304
  Serious: Yes (Hospitalization, Other)
  Sender: FDA-Public Use
  Company Number: DE-AMGEN-DEUSP2021160528

PATIENT
  Age: 71 Year
  Sex: Female

DRUGS (7)
  1. PROLIA [Suspect]
     Active Substance: DENOSUMAB
     Indication: Osteoporotic fracture
     Dosage: 60 MILLIGRAM, Q6MO
     Route: 065
  2. FALITHROM [Concomitant]
     Active Substance: PHENPROCOUMON
     Dosage: 1.5 MILLIGRAM, QD (0-0-1)
  3. PREDNISOLONE [Concomitant]
     Active Substance: PREDNISOLONE
     Dosage: 5 MILLIGRAM, QD (1-0-0)
  4. METAMIZOLE [Concomitant]
     Active Substance: METAMIZOLE
     Dosage: 500 MILLIGRAM, QID (2-2-2-2)
  5. POLYETHYLENE GLYCOLS [Concomitant]
     Active Substance: POLYETHYLENE GLYCOLS
     Dosage: 1 SACHET, BID (1-0-1)
  6. AMITRIPTYLINE HYDROCHLORIDE [Concomitant]
     Active Substance: AMITRIPTYLINE HYDROCHLORIDE
     Dosage: 25 MILLIGRAM, QD (0-0-1)
  7. METHOTREXATE SODIUM [Concomitant]
     Active Substance: METHOTREXATE SODIUM
     Dosage: 10 MILLIGRAM, QWK (1 PER WEEK EVERY THURSDAY)

REACTIONS (1)
  - Spinal compression fracture [Unknown]

NARRATIVE: CASE EVENT DATE: 20200101
